FAERS Safety Report 5358336-6 (Version None)
Quarter: 2007Q2

REPORT INFORMATION
  Report Type: 
  Country: None (occurrence: None)
  Receive Date: 20070530
  Receipt Date: 20061004
  Transmission Date: 20071010
  Serious: Yes (Other)
  Sender: FDA-Public Use
  Company Number: US200601005080

PATIENT
  Age: 67 Year
  Sex: Female
  Weight: 158.7 kg

DRUGS (9)
  1. ZYPREXA [Suspect]
     Indication: SCHIZOPHRENIA
     Dosage: SEE IMAGE
     Dates: start: 19971205, end: 19980203
  2. ZYPREXA [Suspect]
     Indication: SCHIZOPHRENIA
     Dosage: SEE IMAGE
     Dates: start: 20020918, end: 20030606
  3. ZYPREXA [Suspect]
     Indication: SCHIZOPHRENIA
     Dosage: SEE IMAGE
     Dates: start: 20030606
  4. HALIDOL (HALOPERIDOL) [Concomitant]
  5. COGENTIN [Concomitant]
  6. DEPAKOTE [Concomitant]
  7. DYAZIDE /CAN/ (HYDROCHLOROTHIAZIDE, TRIAMTERENE) [Concomitant]
  8. ATENOLOL [Concomitant]
  9. ALLEGRA [Concomitant]

REACTIONS (2)
  - DIABETES MELLITUS NON-INSULIN-DEPENDENT [None]
  - WEIGHT INCREASED [None]
